FAERS Safety Report 6648738-X (Version None)
Quarter: 2010Q1

REPORT INFORMATION
  Report Type: 
  Country: None (occurrence: None)
  Receive Date: 20100324
  Receipt Date: 20100312
  Transmission Date: 20100710
  Serious: Yes (Hospitalization)
  Sender: FDA-Public Use
  Company Number: JP-PFIZER INC-2010034019

PATIENT
  Age: 47 Year
  Sex: Female

DRUGS (1)
  1. SUNITINIB MALATE [Suspect]
     Indication: GASTROINTESTINAL STROMAL TUMOUR
     Dosage: 37.5 MG, 1X/DAY (TDD 37.5 MG)
     Route: 048
     Dates: start: 20091118

REACTIONS (1)
  - CARDIAC FAILURE [None]
